FAERS Safety Report 17263315 (Version 1)
Quarter: 2020Q1

REPORT INFORMATION
  Report Type: Spontaneous
  Country: ES (occurrence: ES)
  Receive Date: 20200113
  Receipt Date: 20200113
  Transmission Date: 20200409
  Serious: Yes (Other)
  Sender: FDA-Public Use
  Company Number: ES-MYLANLABS-2020M1003621

PATIENT
  Age: 71 Year
  Sex: Male
  Weight: 89.5 kg

DRUGS (3)
  1. NAPROXENO                          /00256201/ [Suspect]
     Active Substance: NAPROXEN
     Dosage: 50 MILLIGRAM
     Dates: start: 20191001
  2. METRONIDAZOLE. [Suspect]
     Active Substance: METRONIDAZOLE
     Indication: ANTIBIOTIC PROPHYLAXIS
     Dosage: 500 MILLIGRAM
     Dates: start: 20191001
  3. NAPROXENO                          /00256201/ [Suspect]
     Active Substance: NAPROXEN
     Indication: APPENDICITIS
     Dosage: UNK
     Dates: start: 20191001, end: 20191002

REACTIONS (2)
  - Anaphylactic reaction [Recovered/Resolved]
  - Angioedema [Recovered/Resolved]

NARRATIVE: CASE EVENT DATE: 20191001
